FAERS Safety Report 14487904 (Version 2)
Quarter: 2018Q1

REPORT INFORMATION
  Report Type: Spontaneous
  Country: NL (occurrence: NL)
  Receive Date: 20180205
  Receipt Date: 20180315
  Transmission Date: 20180509
  Serious: Yes (Life-Threatening, Disabling)
  Sender: FDA-Public Use
  Company Number: NL-ASTRAZENECA-2018SE13548

PATIENT
  Age: 41 Year
  Sex: Female
  Weight: 64 kg

DRUGS (7)
  1. AUGMENTIN [Concomitant]
     Active Substance: AMOXICILLIN\CLAVULANATE POTASSIUM
  2. TAGRISSO [Suspect]
     Active Substance: OSIMERTINIB
     Indication: ADENOCARCINOMA
     Route: 048
     Dates: start: 201708, end: 20171212
  3. RIVAROXABAN [Concomitant]
     Active Substance: RIVAROXABAN
     Dates: start: 20171109
  4. TAGRISSO [Suspect]
     Active Substance: OSIMERTINIB
     Indication: LUNG NEOPLASM MALIGNANT
     Route: 048
     Dates: start: 201708, end: 20171212
  5. FRAXODI [Concomitant]
     Active Substance: NADROPARIN CALCIUM
     Dates: start: 20171205
  6. PARACETAMOL [Concomitant]
     Active Substance: ACETAMINOPHEN
  7. DICLOFENAC [Concomitant]
     Active Substance: DICLOFENAC

REACTIONS (6)
  - Condition aggravated [Recovered/Resolved]
  - Respiratory failure [Recovered/Resolved with Sequelae]
  - Epilepsy [Recovered/Resolved with Sequelae]
  - Metabolic encephalopathy [Recovered/Resolved]
  - Pulmonary embolism [Recovered/Resolved]
  - Cerebral infarction [Recovered/Resolved with Sequelae]

NARRATIVE: CASE EVENT DATE: 20171109
